FAERS Safety Report 23494973 (Version 5)
Quarter: 2024Q2

REPORT INFORMATION
  Report Type: Report from Study
  Country: US (occurrence: US)
  Receive Date: 20240207
  Receipt Date: 20240501
  Transmission Date: 20240716
  Serious: Yes (Other)
  Sender: FDA-Public Use
  Company Number: US-MYLANLABS-2024M1011149

PATIENT
  Age: 60 Year
  Sex: Female
  Weight: 58.06 kg

DRUGS (2)
  1. GLATIRAMER ACETATE [Suspect]
     Active Substance: GLATIRAMER ACETATE
     Indication: Multiple sclerosis
     Dosage: 40 MILLIGRAM, 3XW (THREE TIMES PER WEEK)
     Route: 065
     Dates: start: 20240318
  2. GLATIRAMER ACETATE [Suspect]
     Active Substance: GLATIRAMER ACETATE
     Dosage: 40 MILLIGRAM, 3XW (THREE TIMES PER WEEK)
     Route: 065
     Dates: start: 20240322

REACTIONS (15)
  - Multiple sclerosis relapse [Unknown]
  - Optic nerve disorder [Unknown]
  - Tearfulness [Unknown]
  - Visual impairment [Unknown]
  - Malaise [Unknown]
  - Injection site pain [Unknown]
  - Injection site urticaria [Unknown]
  - Fear of injection [Unknown]
  - Injection site mass [Unknown]
  - Injection site haemorrhage [Unknown]
  - Decreased activity [Unknown]
  - Inflammation [Unknown]
  - Central nervous system lesion [Not Recovered/Not Resolved]
  - Pruritus [Unknown]
  - Chest discomfort [Unknown]

NARRATIVE: CASE EVENT DATE: 20240322
